FAERS Safety Report 9645593 (Version 1)
Quarter: 2013Q4

REPORT INFORMATION
  Report Type: Spontaneous
  Country: IE (occurrence: IE)
  Receive Date: 20131025
  Receipt Date: 20131025
  Transmission Date: 20140711
  Serious: Yes (Other)
  Sender: FDA-Public Use
  Company Number: IE-009507513-1310IRL009207

PATIENT
  Sex: Female

DRUGS (2)
  1. FOSAVANCE [Suspect]
     Indication: OSTEOPOROSIS
     Dosage: UNK
     Route: 048
     Dates: start: 201110
  2. LIPITOR [Concomitant]

REACTIONS (4)
  - Hip fracture [Unknown]
  - Femur fracture [Unknown]
  - Pain [Unknown]
  - Pelvic fracture [Unknown]
